FAERS Safety Report 6450773-1 (Version None)
Quarter: 2009Q4

REPORT INFORMATION
  Report Type: 
  Country: None (occurrence: None)
  Receive Date: 20091118
  Receipt Date: 20090602
  Transmission Date: 20100525
  Serious: Yes (Hospitalization)
  Sender: FDA-Public Use
  Company Number: 2009BI011898

PATIENT
  Age: 45 Year
  Sex: Female

DRUGS (11)
  1. TYSABRI [Suspect]
     Indication: MULTIPLE SCLEROSIS
     Dosage: 300 MG;QM;IV
     Route: 042
     Dates: start: 20080702
  2. VALIUM [Concomitant]
  3. NEXIUM [Concomitant]
  4. LOTREL [Concomitant]
  5. MULTI-VITAMIN [Concomitant]
  6. CALCIUM [Concomitant]
  7. VITAMIN D [Concomitant]
  8. OXYBUTYNIN CHLORIDE [Concomitant]
  9. BENADRYL [Concomitant]
  10. TYLENOL (CAPLET) [Concomitant]
  11. AVONEX [Concomitant]

REACTIONS (6)
  - HEADACHE [None]
  - LARYNGITIS [None]
  - MULTIPLE SCLEROSIS RELAPSE [None]
  - NAUSEA [None]
  - ROAD TRAFFIC ACCIDENT [None]
  - VERTIGO [None]
